FAERS Safety Report 18207838 (Version 1)
Quarter: 2020Q3

REPORT INFORMATION
  Report Type: Other
  Country: JP (occurrence: JP)
  Receive Date: 20200828
  Receipt Date: 20200828
  Transmission Date: 20201103
  Serious: Yes (Other)
  Sender: FDA-Public Use
  Company Number: JP-ROCHE-2666710

PATIENT

DRUGS (2)
  1. ERLOTINIB [Suspect]
     Active Substance: ERLOTINIB
     Indication: NON-SMALL CELL LUNG CANCER
     Route: 065
  2. BEVACIZUMAB. [Suspect]
     Active Substance: BEVACIZUMAB
     Indication: NON-SMALL CELL LUNG CANCER
     Route: 065

REACTIONS (20)
  - Alanine aminotransferase increased [Unknown]
  - Hypertension [Unknown]
  - Epistaxis [Unknown]
  - Proteinuria [Unknown]
  - Haemorrhage intracranial [Unknown]
  - Aspartate aminotransferase increased [Unknown]
  - Rash [Unknown]
  - Stomatitis [Unknown]
  - Taste disorder [Unknown]
  - Pyrexia [Unknown]
  - Upper gastrointestinal haemorrhage [Unknown]
  - Lower gastrointestinal haemorrhage [Unknown]
  - Nausea [Unknown]
  - Fatigue [Unknown]
  - Gastrointestinal perforation [Unknown]
  - Anaemia [Unknown]
  - Nail disorder [Unknown]
  - Blood creatinine increased [Unknown]
  - Diarrhoea [Unknown]
  - Pneumonitis [Unknown]
